FAERS Safety Report 7894143-8 (Version None)
Quarter: 2011Q4

REPORT INFORMATION
  Report Type: 
  Country: None (occurrence: None)
  Receive Date: 20111104
  Receipt Date: 20111030
  Transmission Date: 20120403
  Serious: Yes (Hospitalization)
  Sender: FDA-Public Use
  Company Number: US-US-EMD SERONO, INC.-233299K06USA

PATIENT
  Sex: Female
  Weight: 53.572 kg

DRUGS (5)
  1. XANAX [Concomitant]
     Route: 048
     Dates: start: 20020101
  2. ATENOLOL [Concomitant]
     Route: 048
     Dates: start: 20010101
  3. TYLENOL W/ CODEINE NO. 3 [Concomitant]
     Route: 048
  4. REBIF [Suspect]
     Route: 058
     Dates: start: 20050101, end: 20060515
  5. REBIF [Suspect]
     Indication: MULTIPLE SCLEROSIS
     Route: 065
     Dates: start: 20030101, end: 20050101

REACTIONS (6)
  - FATIGUE [None]
  - HYPOAESTHESIA [None]
  - TOOTH INFECTION [None]
  - CONVULSION [None]
  - LABYRINTHITIS [None]
  - WEIGHT DECREASED [None]
